FAERS Safety Report 15237547 (Version 1)
Quarter: 2018Q3

REPORT INFORMATION
  Report Type: Spontaneous
  Country: JP (occurrence: JP)
  Receive Date: 20180803
  Receipt Date: 20180803
  Transmission Date: 20181010
  Serious: Yes (Hospitalization, Other)
  Sender: FDA-Public Use
  Company Number: JP-ROCHE-2164811

PATIENT
  Sex: Male

DRUGS (1)
  1. TECENTRIQ [Suspect]
     Active Substance: ATEZOLIZUMAB
     Indication: NON-SMALL CELL LUNG CANCER
     Route: 041
     Dates: start: 20180605, end: 20180605

REACTIONS (3)
  - Tumour necrosis [Unknown]
  - Oesophageal perforation [Not Recovered/Not Resolved]
  - Lung perforation [Not Recovered/Not Resolved]

NARRATIVE: CASE EVENT DATE: 201807
